FAERS Safety Report 10365554 (Version 2)
Quarter: 2014Q3

REPORT INFORMATION
  Report Type: Spontaneous
  Country: TR (occurrence: TR)
  Receive Date: 20140806
  Receipt Date: 20140808
  Transmission Date: 20150326
  Serious: Yes (Other)
  Sender: FDA-Public Use
  Company Number: TR-009507513-1408TUR001277

PATIENT
  Age: 15 Year
  Sex: Female

DRUGS (3)
  1. MEASLES, MUMPS, AND RUBELLA (WISTAR RA 27-3) VIRUS VACC, LIVE [Suspect]
     Active Substance: MEASLES-MUMPS-RUBELLA VIRUS VACCINE
     Indication: IMMUNISATION
     Route: 058
  2. RIBAVIRIN. [Suspect]
     Active Substance: RIBAVIRIN
     Indication: RUBELLA INFECTION NEUROLOGICAL
     Dosage: 600 MG, BID; 200MG 3X 2
     Route: 048
  3. ISOPRINOSINE [Concomitant]
     Active Substance: INOSINE PRANOBEX
     Dosage: 100 MG/KG/DAY, 1000 MG TID

REACTIONS (2)
  - Gastrointestinal disorder [Unknown]
  - Subacute sclerosing panencephalitis [Unknown]
